FAERS Safety Report 8701704 (Version 3)
Quarter: 2012Q4

REPORT INFORMATION
  Report Type: 
  Country: AT (occurrence: AT)
  Receive Date: 20120803
  Receipt Date: 20121206
  Transmission Date: 20130627
  Serious: Yes (Other)
  Sender: FDA-Public Use
  Company Number: AT-AMGEN-AUTSP2012047570

PATIENT
  Age: 80 Year
  Sex: Male

DRUGS (4)
  1. XGEVA [Suspect]
     Indication: PROSTATE CANCER
     Dosage: 120 mg, q4wk
     Dates: start: 201203
  2. XGEVA [Suspect]
     Indication: METASTASES TO BONE
  3. TRENANTONE [Concomitant]
     Indication: PROSTATE CANCER
     Dosage: 130 mg, q3mo
  4. DOCETAXEL [Concomitant]
     Indication: PROSTATE CANCER
     Dosage: 75 mg, q3wk
     Dates: start: 20120619

REACTIONS (1)
  - Osteonecrosis of jaw [Unknown]
